FAERS Safety Report 6085246-1 (Version None)
Quarter: 2009Q1

REPORT INFORMATION
  Report Type: 
  Country: None (occurrence: None)
  Receive Date: 20090218
  Receipt Date: 20090203
  Transmission Date: 20090719
  Serious: Yes (Hospitalization)
  Sender: FDA-Public Use
  Company Number: 2009SP001811

PATIENT
  Age: 51 Year
  Sex: Female
  Weight: 110 kg

DRUGS (11)
  1. INTEGRILIN [Suspect]
     Dosage: 10.2 ML ONCE; INBO
     Route: 040
     Dates: start: 20090125, end: 20090125
  2. INTEGRILIN [Suspect]
     Dosage: 10.2 ML ONCE; INBO
     Route: 040
     Dates: start: 20090127, end: 20090127
  3. INTEGRILIN [Suspect]
     Indication: MYOCARDIAL INFARCTION
     Dosage: ONCE; IV
     Route: 042
     Dates: start: 20090125, end: 20090125
  4. INTEGRILIN [Suspect]
     Indication: MYOCARDIAL INFARCTION
     Dosage: ONCE; IV
     Route: 042
     Dates: start: 20090127, end: 20090127
  5. NITROGLYCERIN [Concomitant]
  6. METOPROLOL [Concomitant]
  7. HEPARIN [Concomitant]
  8. ASPIRIN [Concomitant]
  9. PERINDOPRIL ERBUMINE [Concomitant]
  10. SIMVASTATIN [Concomitant]
  11. PLAVIX [Concomitant]

REACTIONS (4)
  - ARTERIOSPASM CORONARY [None]
  - BLOOD PRESSURE DECREASED [None]
  - ELECTROCARDIOGRAM CHANGE [None]
  - FEELING HOT [None]
